FAERS Safety Report 14615182 (Version 2)
Quarter: 2018Q1

REPORT INFORMATION
  Report Type: Spontaneous
  Country: DE (occurrence: DE)
  Receive Date: 20180308
  Receipt Date: 20180314
  Transmission Date: 20180509
  Serious: Yes (Other)
  Sender: FDA-Public Use
  Company Number: DE-PFIZER INC-2018088576

PATIENT
  Age: 48 Year
  Sex: Female

DRUGS (1)
  1. LEIOS [Suspect]
     Active Substance: ETHINYL ESTRADIOL\LEVONORGESTREL
     Dosage: UNK
     Dates: start: 1998, end: 2000

REACTIONS (7)
  - Breast cancer [Unknown]
  - Breast discharge [Unknown]
  - Fall [Unknown]
  - Metastasis [Unknown]
  - Fracture [Unknown]
  - Headache [Unknown]
  - Metastases to spine [Unknown]

NARRATIVE: CASE EVENT DATE: 2000
